FAERS Safety Report 4303824-4 (Version None)
Quarter: 2004Q1

REPORT INFORMATION
  Report Type: 
  Country: None (occurrence: None)
  Receive Date: 20040224
  Receipt Date: 20040224
  Transmission Date: 20041129
  Serious: Yes (Hospitalization)
  Sender: FDA-Public Use
  Company Number: None

PATIENT
  Age: 83 Year
  Sex: Female
  Weight: 81.6475 kg

DRUGS (8)
  1. NIFEDIPINE [Suspect]
     Indication: HYPERTENSION
     Dosage: PO QD(60MG)
     Route: 048
  2. DEMADEX [Suspect]
     Indication: HYPERTENSION
     Dosage: PO QD (20 MG)
     Route: 048
  3. METOPROLOL [Concomitant]
  4. IMDUR [Concomitant]
  5. PRILOSEC [Concomitant]
  6. SYNTHROID [Concomitant]
  7. SLOW-K [Concomitant]
  8. AMBIEN [Concomitant]

REACTIONS (2)
  - DIZZINESS [None]
  - HYPOTENSION [None]
